FAERS Safety Report 7794352-2 (Version None)
Quarter: 2011Q4

REPORT INFORMATION
  Report Type: 
  Country: None (occurrence: None)
  Receive Date: 20111004
  Receipt Date: 20110927
  Transmission Date: 20120403
  Serious: Yes (Other)
  Sender: FDA-Public Use
  Company Number: CA-PFIZER INC-2011111862

PATIENT
  Age: 66 Year
  Sex: Female

DRUGS (3)
  1. PREVACID [Concomitant]
     Dosage: UNK
  2. DETROL LA [Suspect]
     Indication: URINARY INCONTINENCE
     Dosage: 4 MG, 1X/DAY
     Route: 048
     Dates: start: 20040201, end: 20110518
  3. FOSAMAX [Concomitant]
     Dosage: UNK

REACTIONS (2)
  - VISION BLURRED [None]
  - DIPLOPIA [None]
